FAERS Safety Report 24970773 (Version 2)
Quarter: 2025Q1

REPORT INFORMATION
  Report Type: Spontaneous
  Country: US (occurrence: US)
  Receive Date: 20250214
  Receipt Date: 20250214
  Transmission Date: 20250409
  Serious: Yes (Other)
  Sender: GILEAD
  Company Number: US-GILEAD-2025-0703983

PATIENT
  Sex: Male

DRUGS (1)
  1. YESCARTA [Suspect]
     Active Substance: AXICABTAGENE CILOLEUCEL
     Indication: Diffuse large B-cell lymphoma
     Route: 065
     Dates: start: 20250110, end: 20250110

REACTIONS (4)
  - Haematochezia [Unknown]
  - Hyperbilirubinaemia [Unknown]
  - Seizure [Unknown]
  - Asthenia [Unknown]
